FAERS Safety Report 10036760 (Version 1)
Quarter: 2014Q1

REPORT INFORMATION
  Report Type: Spontaneous
  Country: US (occurrence: US)
  Receive Date: 20140326
  Receipt Date: 20140326
  Transmission Date: 20141002
  Serious: No
  Sender: FDA-Public Use
  Company Number: US-BIOGENIDEC-2014BI024790

PATIENT
  Age: 69 Year
  Sex: Female

DRUGS (13)
  1. TECFIDERA [Suspect]
     Indication: MULTIPLE SCLEROSIS
     Route: 048
     Dates: start: 20130625
  2. ADVAIR DISKUS [Concomitant]
  3. AMBIEN CR [Concomitant]
  4. CALCIUM [Concomitant]
  5. COUMADIN [Concomitant]
  6. FOLIC ACID [Concomitant]
  7. MIACALCIN [Concomitant]
  8. MIRALAX [Concomitant]
  9. MIRAPEX [Concomitant]
  10. NASONEX [Concomitant]
  11. NEXIUM [Concomitant]
  12. VENTOLIN HFA [Concomitant]
  13. VITAMIN C [Concomitant]

REACTIONS (1)
  - Increased appetite [Unknown]
